FAERS Safety Report 23920622 (Version 5)
Quarter: 2025Q2

REPORT INFORMATION
  Report Type: Report from Study
  Country: CA (occurrence: CA)
  Receive Date: 20240530
  Receipt Date: 20250625
  Transmission Date: 20250717
  Serious: Yes (Hospitalization, Other)
  Sender: TAKEDA
  Company Number: CA-TAKEDA-2024TUS051666

PATIENT
  Age: 51 Year
  Sex: Male

DRUGS (8)
  1. VEDOLIZUMAB [Suspect]
     Active Substance: VEDOLIZUMAB
     Indication: Anastomotic ulcer
  2. VEDOLIZUMAB [Suspect]
     Active Substance: VEDOLIZUMAB
     Indication: Aneurysm ruptured
  3. PROGRAF [Concomitant]
     Active Substance: TACROLIMUS
     Dosage: 0.5 MILLIGRAM, BID
  4. Calcitriol AFT [Concomitant]
  5. LOPERAMIDE [Concomitant]
     Active Substance: LOPERAMIDE
     Dosage: 1 MILLIGRAM, BID
  6. PANTOPRAZOLE MAGNESIUM [Concomitant]
     Active Substance: PANTOPRAZOLE MAGNESIUM
     Dosage: 40 MILLIGRAM, BID
  7. ISOPHANE INSULIN [Concomitant]
     Active Substance: INSULIN NOS
     Dosage: UNK UNK, QD
  8. TACROLIMUS [Concomitant]
     Active Substance: TACROLIMUS
     Dosage: 0.5 MILLIGRAM, BID

REACTIONS (22)
  - Anastomotic ulcer [Unknown]
  - Gastrointestinal haemorrhage [Unknown]
  - Pneumonia aspiration [Unknown]
  - Ischaemic stroke [Unknown]
  - Ascites [Unknown]
  - Subdural haematoma [Unknown]
  - Altered state of consciousness [Unknown]
  - Pericardial effusion [Unknown]
  - Pneumonia bacterial [Unknown]
  - Stenotrophomonas infection [Unknown]
  - Systemic mycosis [Unknown]
  - Meningitis [Not Recovered/Not Resolved]
  - Ischaemic cerebral infarction [Not Recovered/Not Resolved]
  - Posterior reversible encephalopathy syndrome [Not Recovered/Not Resolved]
  - Atelectasis [Unknown]
  - Haemoglobin decreased [Unknown]
  - Food poisoning [Recovered/Resolved]
  - Pleural effusion [Unknown]
  - Localised oedema [Unknown]
  - Frequent bowel movements [Not Recovered/Not Resolved]
  - Blood pressure increased [Unknown]
  - Asthenia [Unknown]

NARRATIVE: CASE EVENT DATE: 20250213
